FAERS Safety Report 13131313 (Version 1)
Quarter: 2017Q1

REPORT INFORMATION
  Report Type: Spontaneous
  Country: FR (occurrence: FR)
  Receive Date: 20170119
  Receipt Date: 20170119
  Transmission Date: 20170428
  Serious: Yes (Hospitalization, Other)
  Sender: FDA-Public Use
  Company Number: FR-PFIZER INC-2016605606

PATIENT
  Age: 31 Year
  Sex: Male

DRUGS (8)
  1. ARACYTINE [Concomitant]
     Active Substance: CYTARABINE
     Indication: LYMPHOMA
     Dosage: 300 MG/M2, UNK
     Dates: start: 199006
  2. METHOTREXATE SODIUM. [Suspect]
     Active Substance: METHOTREXATE SODIUM
     Indication: LYMPHOMA
     Dosage: 3000 MG/M2, UNK
     Route: 042
     Dates: start: 199006
  3. IFOSFAMIDE. [Concomitant]
     Active Substance: IFOSFAMIDE
     Indication: LYMPHOMA
     Dosage: 7500 MG/M2, UNK
     Dates: start: 199006
  4. VP-16 [Concomitant]
     Active Substance: ETOPOSIDE
     Indication: LYMPHOMA
     Dosage: 450 MG/M2, UNK
     Dates: start: 199006
  5. METHOTREXATE SODIUM. [Suspect]
     Active Substance: METHOTREXATE SODIUM
     Dosage: 150 MG, UNK
  6. METHOTREXATE SODIUM. [Suspect]
     Active Substance: METHOTREXATE SODIUM
     Dosage: 5 G, UNK
     Route: 042
     Dates: start: 19900720
  7. FOLINIC ACID [Concomitant]
     Active Substance: LEUCOVORIN
     Dosage: 200 MG, DAILY, FOR THE FOLLOWING 72 HOURS
     Dates: start: 19900720
  8. G-CSF [Concomitant]
     Active Substance: GRANULOCYTE COLONY-STIMULATING FACTOR NOS
     Indication: LYMPHOMA
     Dosage: UNK

REACTIONS (6)
  - Bone marrow failure [Recovered/Resolved]
  - Acute kidney injury [Recovered/Resolved]
  - Mucosal inflammation [Unknown]
  - Liver injury [Recovered/Resolved]
  - Skin necrosis [Recovered/Resolved]
  - Accidental underdose [Unknown]
